FAERS Safety Report 17151392 (Version 1)
Quarter: 2019Q4

REPORT INFORMATION
  Report Type: Spontaneous
  Country: US (occurrence: US)
  Receive Date: 20191213
  Receipt Date: 20191213
  Transmission Date: 20200122
  Serious: No
  Sender: FDA-Public Use
  Company Number: US-SUNOVION-2019SUN005217

PATIENT
  Sex: Female
  Weight: 53.06 kg

DRUGS (2)
  1. ESZOPICLONE. [Suspect]
     Active Substance: ESZOPICLONE
  2. LUNESTA [Suspect]
     Active Substance: ESZOPICLONE
     Indication: INSOMNIA
     Dosage: 3 MG
     Route: 048

REACTIONS (5)
  - Hot flush [Unknown]
  - Chest discomfort [Unknown]
  - Insomnia [Unknown]
  - Menopausal symptoms [Unknown]
  - Throat tightness [Unknown]

NARRATIVE: CASE EVENT DATE: 2018
